FAERS Safety Report 8591805-4 (Version None)
Quarter: 2012Q3

REPORT INFORMATION
  Report Type: 
  Country: None (occurrence: None)
  Receive Date: 20120814
  Receipt Date: 20120808
  Transmission Date: 20120928
  Serious: Yes (Hospitalization, Other)
  Sender: FDA-Public Use
  Company Number: PHHY2011CA100040

PATIENT
  Sex: Female
  Weight: 65 kg

DRUGS (1)
  1. EXTAVIA [Suspect]
     Indication: RELAPSING-REMITTING MULTIPLE SCLEROSIS
     Dosage: 8 MIU, QOD
     Route: 058
     Dates: start: 20110930

REACTIONS (9)
  - BACK PAIN [None]
  - MULTIPLE SCLEROSIS RELAPSE [None]
  - RENAL IMPAIRMENT [None]
  - DYSURIA [None]
  - HYPOAESTHESIA [None]
  - SENSATION OF HEAVINESS [None]
  - INJECTION SITE ERYTHEMA [None]
  - INJECTION SITE HAEMATOMA [None]
  - FATIGUE [None]
